FAERS Safety Report 6955891-7 (Version None)
Quarter: 2010Q3

REPORT INFORMATION
  Report Type: 
  Country: None (occurrence: None)
  Receive Date: 20100830
  Receipt Date: 20100817
  Transmission Date: 20110219
  Serious: Yes (Hospitalization)
  Sender: FDA-Public Use
  Company Number: ES-ELI_LILLY_AND_COMPANY-ES201008005273

PATIENT
  Sex: Female
  Weight: 57 kg

DRUGS (10)
  1. FORTEO [Suspect]
     Indication: OSTEOPOROSIS
     Dosage: 20 UG, DAILY (1/D)
     Route: 058
     Dates: start: 20091101
  2. FORTEO [Suspect]
     Dosage: 20 UG, DAILY (1/D)
  3. TEGRETOL [Concomitant]
     Indication: EPILEPSY
     Dosage: 200 MG, EACH MORNING
     Route: 048
  4. TEGRETOL [Concomitant]
     Dosage: 200 MG, OTHER
     Route: 048
  5. TEGRETOL [Concomitant]
     Dosage: 400 MG, EACH EVENING
     Route: 048
  6. SABRILEX [Concomitant]
     Indication: EPILEPSY
     Dosage: 2 TABLETS/12H
     Route: 048
  7. ANAFRANIL [Concomitant]
     Indication: EPILEPSY
     Dosage: 25 MG, 2/D
     Route: 048
  8. NOIAFREN [Concomitant]
     Indication: EPILEPSY
     Dosage: 1 OR 1/2 TABLET/24H
     Route: 048
  9. MASTICAL D [Concomitant]
     Indication: MINERAL SUPPLEMENTATION
     Dosage: 1 TABLET/12 H
     Route: 048
  10. TARDYFERON [Concomitant]
     Indication: BLOOD IRON
     Dosage: 30 MG, 2/D
     Route: 048

REACTIONS (3)
  - ANAEMIA [None]
  - FALL [None]
  - FEMUR FRACTURE [None]
